FAERS Safety Report 4314675-9 (Version None)
Quarter: 2004Q1

REPORT INFORMATION
  Report Type: 
  Country: None (occurrence: None)
  Receive Date: 20040309
  Receipt Date: 20040309
  Transmission Date: 20041129
  Serious: Yes (Hospitalization)
  Sender: FDA-Public Use
  Company Number: None

PATIENT
  Sex: Female
  Weight: 30 kg

DRUGS (1)
  1. INFLIXIMAB 300 MG [Suspect]
     Indication: INFLAMMATORY BOWEL DISEASE
     Dosage: 300 MG IV X 1
     Route: 042
     Dates: start: 20030731

REACTIONS (3)
  - BACK PAIN [None]
  - OXYGEN SATURATION DECREASED [None]
  - RESPIRATORY DISTRESS [None]
